FAERS Safety Report 6706939-6 (Version None)
Quarter: 2010Q2

REPORT INFORMATION
  Report Type: 
  Country: None (occurrence: None)
  Receive Date: 20100503
  Receipt Date: 20100426
  Transmission Date: 20101027
  Serious: Yes (Hospitalization)
  Sender: FDA-Public Use
  Company Number: DE-ROCHE-699322

PATIENT
  Sex: Female

DRUGS (8)
  1. PEGINTERFERON ALFA-2A [Suspect]
     Route: 058
     Dates: start: 20090521, end: 20091029
  2. PEGINTERFERON ALFA-2A [Suspect]
     Route: 058
     Dates: start: 20091105, end: 20091211
  3. RIBAVIRIN [Suspect]
     Route: 048
     Dates: start: 20090520, end: 20091104
  4. RIBAVIRIN [Suspect]
     Route: 048
     Dates: start: 20091105, end: 20091216
  5. BLINDED ELTROMBOPAG [Suspect]
     Indication: THROMBOCYTOPENIA
     Dosage: DOSE BLINDED.
     Route: 048
     Dates: start: 20090520, end: 20090901
  6. BLINDED ELTROMBOPAG [Suspect]
     Dosage: DOSE BLINDED.
     Route: 048
     Dates: start: 20090902, end: 20091216
  7. ELTROMBOPAG [Suspect]
     Indication: THROMBOCYTOPENIA
     Dosage: VARIABLE DOSES DAILY.
     Route: 048
     Dates: start: 20090422, end: 20090517
  8. ELTROMBOPAG [Suspect]
     Route: 048
     Dates: start: 20090518, end: 20090519

REACTIONS (2)
  - GENERAL PHYSICAL HEALTH DETERIORATION [None]
  - PERITONITIS BACTERIAL [None]
